FAERS Safety Report 6946481 (Version 3)
Quarter: 2019Q3

REPORT INFORMATION
  Report Type: Spontaneous
  Country: IT (occurrence: IT)
  Receive Date: 20090320
  Receipt Date: 20190929
  Transmission Date: 20191005
  Serious: Yes (Other)
  Sender: FDA-Public Use
  Company Number: PHHY2009IT08573

PATIENT
  Age: 5 Month
  Sex: Female

DRUGS (5)
  1. CYCLOSPORIN [Concomitant]
     Active Substance: CYCLOSPORINE
     Dosage: 4 MG/KG, QD
     Route: 065
  2. PREDNISONE. [Suspect]
     Active Substance: PREDNISONE
     Indication: AUTOIMMUNE HAEMOLYTIC ANAEMIA
     Dosage: 4 MG/KG, QD
     Route: 065
  3. RITUXIMAB. [Concomitant]
     Active Substance: RITUXIMAB
     Indication: AUTOIMMUNE HAEMOLYTIC ANAEMIA
     Dosage: 375 MG/M2, UNK
     Route: 065
  4. CYCLOSPORIN [Concomitant]
     Active Substance: CYCLOSPORINE
     Indication: AUTOIMMUNE HAEMOLYTIC ANAEMIA
     Dosage: 2 MG/KG, QD
     Route: 065
  5. RITUXIMAB. [Concomitant]
     Active Substance: RITUXIMAB
     Dosage: UNK (EVERY 4 WEEKLY DOSES)
     Route: 065

REACTIONS (7)
  - Immune thrombocytopenic purpura [Recovering/Resolving]
  - Lymphoproliferative disorder [Unknown]
  - Disease recurrence [Unknown]
  - Drug ineffective [Unknown]
  - CD8 lymphocytes increased [Unknown]
  - Cushingoid [Unknown]
  - CD4 lymphocytes increased [Unknown]
